FAERS Safety Report 6041567-X (Version None)
Quarter: 2009Q1

REPORT INFORMATION
  Report Type: 
  Country: None (occurrence: None)
  Receive Date: 20090116
  Receipt Date: 20090113
  Transmission Date: 20090719
  Serious: Yes (Other)
  Sender: FDA-Public Use
  Company Number: A0762354A

PATIENT
  Age: 74 Year
  Sex: Female

DRUGS (7)
  1. ADVAIR DISKUS 100/50 [Suspect]
     Indication: ASTHMA
     Dosage: 1PUFF TWICE PER DAY
     Route: 055
     Dates: start: 20010501
  2. MAXAIR [Concomitant]
  3. ACIPHEX [Concomitant]
  4. CRESTOR [Concomitant]
  5. AMLODIPINE BESYLATE [Concomitant]
  6. TRIAMTEREN + HYDROCHLOROTHIAZIDE [Concomitant]
  7. MECLIZINE [Concomitant]

REACTIONS (6)
  - ASTHMA [None]
  - CHEST PAIN [None]
  - DYSPHONIA [None]
  - DYSPNOEA [None]
  - PALPITATIONS [None]
  - PRODUCT QUALITY ISSUE [None]
